FAERS Safety Report 9819653 (Version 1)
Quarter: 2014Q1

REPORT INFORMATION
  Report Type: Spontaneous
  Country: CA (occurrence: CA)
  Receive Date: 20140115
  Receipt Date: 20140115
  Transmission Date: 20141002
  Serious: Yes (Other)
  Sender: FDA-Public Use
  Company Number: CA-MERCK-1401CAN004824

PATIENT
  Age: 73 Year
  Sex: Male

DRUGS (5)
  1. EZETROL [Suspect]
     Dosage: 10 MG,  1 EVERY 1 DAY(S)
     Route: 048
  2. FOSINOPRIL SODIUM [Concomitant]
     Dosage: UNK
     Route: 065
  3. GALANTAMINE [Concomitant]
     Route: 065
  4. INDAPAMIDE [Concomitant]
     Route: 065
  5. INSULIN [Concomitant]
     Route: 065

REACTIONS (2)
  - Blood creatinine increased [Not Recovered/Not Resolved]
  - Muscle atrophy [Not Recovered/Not Resolved]
